FAERS Safety Report 10094199 (Version 1)
Quarter: 2014Q2

REPORT INFORMATION
  Report Type: Spontaneous
  Country: US (occurrence: None)
  Receive Date: 20140421
  Receipt Date: 20140421
  Transmission Date: 20141212
  Serious: Yes (Other)
  Sender: FDA-Public Use
  Company Number: None

PATIENT
  Age: 61 Year
  Sex: Female
  Weight: 83.92 kg

DRUGS (1)
  1. XARELTO [Suspect]
     Indication: ATRIAL FIBRILLATION
     Dosage: 1, ONCE DAILY, TAKEN BY MOUTH
     Dates: start: 20130401, end: 20140420

REACTIONS (2)
  - Blood glucose increased [None]
  - Glycosylated haemoglobin increased [None]
